FAERS Safety Report 16882051 (Version 2)
Quarter: 2019Q4

REPORT INFORMATION
  Report Type: Report from Study
  Country: US (occurrence: US)
  Receive Date: 20191003
  Receipt Date: 20191203
  Transmission Date: 20200122
  Serious: Yes (Death)
  Sender: FDA-Public Use
  Company Number: US-EXELIXIS-CABO-19024127

PATIENT
  Sex: Female

DRUGS (6)
  1. CABOMETYX [Suspect]
     Active Substance: CABOZANTINIB S-MALATE
     Dosage: 40 MG, QD
     Route: 048
     Dates: start: 20190726, end: 20190905
  2. PRAVASTATIN. [Concomitant]
     Active Substance: PRAVASTATIN
     Dosage: UNK
  3. CABOMETYX [Suspect]
     Active Substance: CABOZANTINIB S-MALATE
     Indication: MALIGNANT RESPIRATORY TRACT NEOPLASM
     Dosage: 40 MG, QD
     Route: 048
     Dates: start: 20190706
  4. CALCIUM [Concomitant]
     Active Substance: CALCIUM
     Dosage: UNK
  5. VITAMIN D3 [Concomitant]
     Active Substance: CHOLECALCIFEROL
     Dosage: UNK
  6. ZANTAC [Concomitant]
     Active Substance: RANITIDINE HYDROCHLORIDE
     Dosage: UNK

REACTIONS (2)
  - Malignant neoplasm progression [Fatal]
  - Drug ineffective for unapproved indication [Unknown]
